FAERS Safety Report 4311072-7 (Version None)
Quarter: 2004Q1

REPORT INFORMATION
  Report Type: 
  Country: None (occurrence: None)
  Receive Date: 20040302
  Receipt Date: 20040223
  Transmission Date: 20041129
  Serious: No
  Sender: FDA-Public Use
  Company Number: US-JNJFOC-20040204552

PATIENT
  Age: 56 Year
  Sex: Male

DRUGS (8)
  1. DURAGESIC [Suspect]
     Indication: BACK PAIN
     Dosage: SEE IMAGE
     Route: 062
     Dates: start: 20030101, end: 20030101
  2. DURAGESIC [Suspect]
     Indication: BACK PAIN
     Dosage: SEE IMAGE
     Route: 062
     Dates: start: 20031201, end: 20031201
  3. DURAGESIC [Suspect]
     Indication: BACK PAIN
     Dosage: SEE IMAGE
     Route: 062
     Dates: start: 20031201, end: 20040101
  4. DURAGESIC [Suspect]
     Indication: BACK PAIN
     Dosage: SEE IMAGE
     Route: 062
     Dates: start: 20030201
  5. NEURONTIN [Concomitant]
  6. SOMA COMPOUND (CARISOPRODOL) [Concomitant]
  7. BACLOFEN [Concomitant]
  8. LORTAB [Concomitant]

REACTIONS (8)
  - ABDOMINAL DISCOMFORT [None]
  - APPLICATION SITE BURNING [None]
  - APPLICATION SITE SCAR [None]
  - DRUG EFFECT DECREASED [None]
  - HYPERHIDROSIS [None]
  - INSOMNIA [None]
  - PAIN [None]
  - PHARMACEUTICAL PRODUCT COMPLAINT [None]
